FAERS Safety Report 8881631 (Version 1)
Quarter: 2012Q4

REPORT INFORMATION
  Report Type: 
  Country: US (occurrence: US)
  Receive Date: 20121101
  Receipt Date: 20121101
  Transmission Date: 20130627
  Serious: No
  Sender: FDA-Public Use
  Company Number: US-PFIZER INC-2012269108

PATIENT
  Age: 65 Year
  Sex: Female
  Weight: 50.79 kg

DRUGS (8)
  1. SUTENT [Suspect]
     Indication: PRIMITIVE NEUROECTODERMAL TUMOR
     Dosage: 37.5 mg, (12.5 mg + 25 mg)
     Dates: start: 20120130, end: 20121024
  2. SUTENT [Suspect]
     Indication: MALIGNANT NEOPLASM OF LIVER, SPECIFIED AS SECONDARY
  3. SUTENT [Suspect]
     Indication: METASTASES TO SMALL INTESTINE
  4. SUTENT [Suspect]
     Indication: METASTASES TO LYMPH NODES
  5. SUTENT [Suspect]
     Indication: METASTASES TO ADRENALS
  6. WELLBUTRIN [Concomitant]
     Dosage: UNK
  7. ALENDRONATE SODIUM [Concomitant]
     Dosage: 70 mg, weekly
  8. ENSURE [Concomitant]
     Indication: SUPPLEMENTATION THERAPY
     Dosage: UNK

REACTIONS (5)
  - Diarrhoea [Unknown]
  - Flatulence [Unknown]
  - Libido disorder [Unknown]
  - Musculoskeletal pain [Unknown]
  - Myalgia [Unknown]
